FAERS Safety Report 12037141 (Version 2)
Quarter: 2016Q3

REPORT INFORMATION
  Report Type: Spontaneous
  Country: ES (occurrence: ES)
  Receive Date: 20160208
  Receipt Date: 20160824
  Transmission Date: 20161109
  Serious: Yes (Hospitalization, Congenital Anomaly, Other)
  Sender: FDA-Public Use
  Company Number: ES-BRISTOL-MYERS SQUIBB COMPANY-13813316

PATIENT

DRUGS (1)
  1. METFORMIN HYDROCHLORIDE. [Suspect]
     Active Substance: METFORMIN HYDROCHLORIDE
     Indication: PRODUCT USED FOR UNKNOWN INDICATION
     Dosage: 1.7 G, UNK
     Route: 064
     Dates: end: 20070112

REACTIONS (2)
  - Oesophageal atresia [Recovered/Resolved with Sequelae]
  - Foetal exposure during pregnancy [Recovered/Resolved with Sequelae]

NARRATIVE: CASE EVENT DATE: 20070117
